FAERS Safety Report 11327402 (Version 5)
Quarter: 2015Q4

REPORT INFORMATION
  Report Type: Spontaneous
  Country: FR (occurrence: FR)
  Receive Date: 20150731
  Receipt Date: 20151106
  Transmission Date: 20160304
  Serious: Yes (Hospitalization)
  Sender: FDA-Public Use
  Company Number: FR-PFIZER INC-2015250886

PATIENT
  Age: 82 Year
  Sex: Female

DRUGS (31)
  1. LASILIX [Suspect]
     Active Substance: FUROSEMIDE
     Dosage: 120 MG, DAILY
     Route: 048
  2. HYPERIUM [Suspect]
     Active Substance: RILMENIDINE PHOSPHATE
     Dosage: 1 MG, 2X/DAY
     Route: 048
     Dates: start: 20150316
  3. DIPROSONE [Suspect]
     Active Substance: BETAMETHASONE DIPROPIONATE
     Dosage: 2X/DAY
     Route: 003
     Dates: start: 20150416, end: 201507
  4. GLYCEROL\PARAFFIN [Suspect]
     Active Substance: GLYCERIN\PARAFFIN
     Dosage: 1 DF, DAILY
     Route: 003
     Dates: start: 20150416, end: 201507
  5. UMULINE [Suspect]
     Active Substance: INSULIN HUMAN
     Dosage: 3X/DAY
     Route: 058
  6. PARACETAMOL [Suspect]
     Active Substance: ACETAMINOPHEN
     Dosage: 1 G, 3X/DAY
     Route: 048
  7. COLCHICINE. [Suspect]
     Active Substance: COLCHICINE
     Indication: GOUT
     Dosage: UNK
     Dates: start: 201503, end: 201503
  8. ECONAZOLE [Suspect]
     Active Substance: ECONAZOLE
     Indication: INTERTRIGO
     Dosage: UNK
     Dates: start: 20150709, end: 201507
  9. MOVICOL [Suspect]
     Active Substance: POLYETHYLENE GLYCOL 3350\POTASSIUM CHLORIDE\SODIUM BICARBONATE\SODIUM CHLORIDE
     Dosage: 2 DF, AS NEEDED
     Route: 048
  10. CEFOXITIN [Suspect]
     Active Substance: CEFOXITIN SODIUM
     Indication: PYELONEPHRITIS
     Dosage: UNK
     Route: 042
     Dates: start: 201503, end: 20150328
  11. RIFAMPICINE [Suspect]
     Active Substance: RIFAMPIN
     Indication: STAPHYLOCOCCAL INFECTION
     Dosage: UNK
     Route: 065
     Dates: start: 201503, end: 201503
  12. AMLOR [Suspect]
     Active Substance: AMLODIPINE BESYLATE
     Dosage: 20 MG, DAILY
     Route: 048
  13. BRICANYL [Suspect]
     Active Substance: TERBUTALINE SULFATE
     Dosage: 1 DF, 3X/DAY
     Route: 055
  14. LANTUS [Suspect]
     Active Substance: INSULIN GLARGINE
     Dosage: 10 IU, DAILY
     Route: 058
  15. AUGMENTIN [Suspect]
     Active Substance: AMOXICILLIN\CLAVULANATE POTASSIUM
     Dosage: UNK
     Dates: start: 20150310, end: 20150310
  16. MATRIFEN [Suspect]
     Active Substance: FENTANYL
     Indication: GOUT
     Dosage: UNK
     Route: 003
     Dates: start: 201503, end: 201503
  17. FLAGYL [Suspect]
     Active Substance: METRONIDAZOLE\METRONIDAZOLE HYDROCHLORIDE
     Indication: COLITIS
     Dosage: UNK
     Route: 065
     Dates: start: 201503, end: 201503
  18. DISCOTRINE [Suspect]
     Active Substance: NITROGLYCERIN
     Dosage: 5 MG, DAILY
     Route: 062
  19. LOXEN [Suspect]
     Active Substance: NICARDIPINE HYDROCHLORIDE
     Dosage: 1 DF, AS NEEDED
     Route: 048
  20. BACTRIM [Suspect]
     Active Substance: SULFAMETHOXAZOLE\TRIMETHOPRIM
     Indication: STAPHYLOCOCCAL INFECTION
     Dosage: UNK
     Route: 065
     Dates: start: 201503, end: 201503
  21. CETIRIZINE [Suspect]
     Active Substance: CETIRIZINE HYDROCHLORIDE
     Dosage: 10 MG, DAILY
     Route: 048
  22. ATROVENT [Suspect]
     Active Substance: IPRATROPIUM BROMIDE
     Dosage: 3X/DAY
     Route: 055
  23. TIENAM [Suspect]
     Active Substance: CILASTATIN SODIUM\IMIPENEM
     Indication: PYELONEPHRITIS
     Dosage: UNK
     Route: 042
     Dates: start: 20150316, end: 201503
  24. CIPROFLOXACINE PFIZER [Suspect]
     Active Substance: CIPROFLOXACIN
     Indication: PYELONEPHRITIS
     Dosage: UNK
     Route: 042
     Dates: start: 20150316, end: 201503
  25. ZOPICLONE [Suspect]
     Active Substance: ZOPICLONE
     Dosage: 0.5 DF, DAILY
     Route: 048
  26. ROCEPHINE [Suspect]
     Active Substance: CEFTRIAXONE SODIUM
     Indication: STAPHYLOCOCCAL INFECTION
     Dosage: UNK
     Route: 042
     Dates: start: 201503, end: 201503
  27. FOSFOMYCIN [Suspect]
     Active Substance: FOSFOMYCIN
     Indication: STAPHYLOCOCCAL INFECTION
     Dosage: UNK
     Route: 042
     Dates: start: 201503, end: 201503
  28. CORDARONE [Suspect]
     Active Substance: AMIODARONE HYDROCHLORIDE
     Dosage: UNK
     Route: 048
     Dates: start: 20150310, end: 20150316
  29. CIPROFLOXACINE PFIZER [Suspect]
     Active Substance: CIPROFLOXACIN
     Indication: PYELONEPHRITIS
  30. COUMADINE [Suspect]
     Active Substance: WARFARIN SODIUM
     Dosage: 0.5 DF, ALTERNATE DAY
     Route: 048
  31. DIFFU K [Suspect]
     Active Substance: POTASSIUM CHLORIDE
     Dosage: 6 DF, DAILY
     Route: 048

REACTIONS (1)
  - Drug reaction with eosinophilia and systemic symptoms [Recovered/Resolved]

NARRATIVE: CASE EVENT DATE: 20150709
